FAERS Safety Report 5330736-X (Version None)
Quarter: 2007Q2

REPORT INFORMATION
  Report Type: 
  Country: None (occurrence: None)
  Receive Date: 20070522
  Receipt Date: 20070509
  Transmission Date: 20071010
  Serious: Yes (Disabling)
  Sender: FDA-Public Use
  Company Number: PHBS2007TR07620

PATIENT
  Sex: Female

DRUGS (1)
  1. ZELMAC [Suspect]
     Indication: PAIN
     Dosage: 6 MG, BID
     Route: 048
     Dates: end: 20070402

REACTIONS (3)
  - ASTHENIA [None]
  - GAIT DISTURBANCE [None]
  - HYPOAESTHESIA [None]
